FAERS Safety Report 18571379 (Version 1)
Quarter: 2020Q4

REPORT INFORMATION
  Report Type: Spontaneous
  Country: US (occurrence: US)
  Receive Date: 20201202
  Receipt Date: 20201202
  Transmission Date: 20210114
  Serious: No
  Sender: FDA-Public Use
  Company Number: US-UPSHER-SMITH LABORATORIES, LLC-2020USL00593

PATIENT
  Age: 82 Year
  Sex: Male
  Weight: 81.65 kg

DRUGS (5)
  1. MIDODRINE HYDROCHLORIDE. [Suspect]
     Active Substance: MIDODRINE HYDROCHLORIDE
     Indication: ATRIAL FIBRILLATION
     Dosage: 10 MG, 2X/DAY (7:00AM AND 2:00PM)
     Dates: start: 20201101, end: 20201101
  2. MIDODRINE HYDROCHLORIDE. [Suspect]
     Active Substance: MIDODRINE HYDROCHLORIDE
     Indication: CARDIAC OPERATION
     Dosage: 10 MG, ONCE AT 2 PM
     Dates: start: 20201102, end: 20201102
  3. ALFUZOSIN [Concomitant]
     Active Substance: ALFUZOSIN
     Dosage: 10 MG, 1X/DAY
  4. ELIQUIS [Concomitant]
     Active Substance: APIXABAN
     Dosage: 5 MG, 2X/DAY
  5. XYREM [Concomitant]
     Active Substance: SODIUM OXYBATE
     Dosage: 2 ML, 1X/DAY AT NIGHT

REACTIONS (2)
  - Pollakiuria [Recovered/Resolved]
  - Dysuria [Unknown]

NARRATIVE: CASE EVENT DATE: 20201101
